FAERS Safety Report 16108198 (Version 2)
Quarter: 2019Q4

REPORT INFORMATION
  Report Type: Spontaneous
  Country: FR (occurrence: FR)
  Receive Date: 20190322
  Receipt Date: 20191018
  Transmission Date: 20200122
  Serious: Yes (Death, Hospitalization, Other)
  Sender: FDA-Public Use
  Company Number: FR-BRISTOL-MYERS SQUIBB COMPANY-BMS-2019-028619

PATIENT
  Age: 50 Year
  Sex: Female

DRUGS (2)
  1. YERVOY [Suspect]
     Active Substance: IPILIMUMAB
     Indication: METASTATIC MALIGNANT MELANOMA
     Route: 041
     Dates: start: 20181219, end: 20190108
  2. OPDIVO [Suspect]
     Active Substance: NIVOLUMAB
     Indication: METASTATIC MALIGNANT MELANOMA
     Route: 041
     Dates: start: 20181219, end: 20190108

REACTIONS (4)
  - Cerebellar syndrome [Fatal]
  - Intentional product use issue [Unknown]
  - Meningitis aseptic [Fatal]
  - Headache [Fatal]

NARRATIVE: CASE EVENT DATE: 201901
